FAERS Safety Report 7732648-0 (Version None)
Quarter: 2011Q3

REPORT INFORMATION
  Report Type: 
  Country: None (occurrence: None)
  Receive Date: 20110907
  Receipt Date: 20110830
  Transmission Date: 20111222
  Serious: Yes (Other)
  Sender: FDA-Public Use
  Company Number: PL-AMGEN-POLSP2011045107

PATIENT
  Age: 27 Year
  Sex: Female
  Weight: 126 kg

DRUGS (1)
  1. ENBREL [Suspect]
     Indication: RHEUMATOID ARTHRITIS
     Dosage: 50 MG, WEEKLY
     Route: 058
     Dates: start: 20110718, end: 20110801

REACTIONS (6)
  - DIARRHOEA [None]
  - HYPERHIDROSIS [None]
  - FEELING HOT [None]
  - ASTHENIA [None]
  - ERYTHEMA [None]
  - NIGHT SWEATS [None]
